FAERS Safety Report 9294058 (Version 1)
Quarter: 2013Q1

REPORT INFORMATION
  Report Type: Spontaneous
  Country: US (occurrence: None)
  Receive Date: 20121214
  Receipt Date: 20121214
  Transmission Date: 20140127
  Serious: Yes (Other)
  Sender: FDA-Public Use
  Company Number: 1207USA009600

PATIENT
  Age: 66 Year
  Sex: Male

DRUGS (1)
  1. JANUVIA ( SITAGLIPTIN PHOSPHATE) FILM-COATED TABLET, 50 MG [Suspect]
     Route: 048

REACTIONS (1)
  - Constipation [None]
